FAERS Safety Report 16133629 (Version 2)
Quarter: 2019Q2

REPORT INFORMATION
  Report Type: Other
  Country: CA (occurrence: CA)
  Receive Date: 20190329
  Receipt Date: 20190422
  Transmission Date: 20190711
  Serious: Yes (Hospitalization)
  Sender: FDA-Public Use
  Company Number: CA-APOTEX-2019AP010181

PATIENT
  Age: 45 Year
  Sex: Female
  Weight: 107 kg

DRUGS (3)
  1. SALBUTAMOL [Suspect]
     Active Substance: ALBUTEROL
     Indication: PRODUCT USED FOR UNKNOWN INDICATION
     Dosage: UNK
     Route: 065
  2. BREO ELLIPTA [Suspect]
     Active Substance: FLUTICASONE FUROATE\VILANTEROL TRIFENATATE
     Indication: PRODUCT USED FOR UNKNOWN INDICATION
     Dosage: UNK
     Route: 065
  3. FLUTICASONE PROPIONATE W/SALMETEROL XINAFOATE [Suspect]
     Active Substance: FLUTICASONE PROPIONATE\SALMETEROL XINAFOATE
     Indication: PRODUCT USED FOR UNKNOWN INDICATION
     Dosage: 2 DF, BID
     Route: 055

REACTIONS (20)
  - Dysphagia [Unknown]
  - Headache [Unknown]
  - Chest pain [Unknown]
  - Atelectasis [Unknown]
  - Upper respiratory tract infection [Unknown]
  - Haematuria [Unknown]
  - Tachycardia [Unknown]
  - Asthma [Unknown]
  - Drug ineffective [Unknown]
  - Fatigue [Unknown]
  - Lower respiratory tract congestion [Unknown]
  - Movement disorder [Unknown]
  - Pulmonary mass [Unknown]
  - Chromaturia [Unknown]
  - Wheezing [Unknown]
  - Middle insomnia [Unknown]
  - Cough [Unknown]
  - Dyspnoea [Unknown]
  - Vocal cord dysfunction [Unknown]
  - Gastrooesophageal reflux disease [Unknown]
